FAERS Safety Report 9955085 (Version 1)
Quarter: 2014Q1

REPORT INFORMATION
  Report Type: Spontaneous
  Country: US (occurrence: US)
  Receive Date: 20140304
  Receipt Date: 20140304
  Transmission Date: 20141002
  Serious: No
  Sender: FDA-Public Use
  Company Number: US-GILEAD-2013-0068112

PATIENT
  Sex: Female

DRUGS (1)
  1. COMPLERA [Suspect]
     Indication: HIV INFECTION
     Dosage: UNK
     Route: 048
     Dates: start: 201201, end: 201211

REACTIONS (1)
  - Insomnia [Not Recovered/Not Resolved]
